FAERS Safety Report 5369741-6 (Version None)
Quarter: 2007Q2

REPORT INFORMATION
  Report Type: 
  Country: None (occurrence: None)
  Receive Date: 20070625
  Receipt Date: 20070618
  Transmission Date: 20071010
  Serious: Yes (Other)
  Sender: FDA-Public Use
  Company Number: US-ROXANE LABORATORIES, INC-2007-BP-11276RO

PATIENT
  Age: 57 Year
  Sex: Female

DRUGS (4)
  1. DEXAMETHASONE 0.5MG TAB [Suspect]
     Indication: PAIN
     Dosage: 10 MG Q12H X 5 DAYS
     Route: 048
     Dates: start: 20041201, end: 20041201
  2. DEXAMETHASONE 0.5MG TAB [Suspect]
     Dosage: 36 MG OVER 5 DAYS (OUTPATIENT)
     Route: 048
     Dates: start: 20041201, end: 20041201
  3. TRIAMCINOLONE [Suspect]
     Indication: ACNE
     Dosage: 60 MG X 1 DOSE
     Route: 042
     Dates: start: 20040901, end: 20040901
  4. DIHYDROERGOTAMINE MESYLATE [Suspect]
     Indication: PAIN
     Dosage: 1 MG Q8H X 4 DAYS
     Route: 042
     Dates: start: 20041201, end: 20041201

REACTIONS (1)
  - OSTEONECROSIS [None]
